FAERS Safety Report 13660003 (Version 1)
Quarter: 2017Q2

REPORT INFORMATION
  Report Type: Spontaneous
  Country: US (occurrence: US)
  Receive Date: 20170616
  Receipt Date: 20170616
  Transmission Date: 20170830
  Serious: No
  Sender: FDA-Public Use
  Company Number: US-ALLERGAN-1719929US

PATIENT
  Sex: Female

DRUGS (1)
  1. LILETTA [Suspect]
     Active Substance: LEVONORGESTREL
     Indication: PRODUCT USED FOR UNKNOWN INDICATION
     Dosage: 52 MG
     Route: 015

REACTIONS (7)
  - Heart rate increased [Not Recovered/Not Resolved]
  - Breast pain [Not Recovered/Not Resolved]
  - Chest discomfort [Not Recovered/Not Resolved]
  - Mood swings [Not Recovered/Not Resolved]
  - Panic attack [Not Recovered/Not Resolved]
  - Libido decreased [Not Recovered/Not Resolved]
  - Pelvic pain [Not Recovered/Not Resolved]
